FAERS Safety Report 6793188-9 (Version None)
Quarter: 2010Q2

REPORT INFORMATION
  Report Type: 
  Country: None (occurrence: None)
  Receive Date: 20100624
  Receipt Date: 20090803
  Transmission Date: 20101027
  Serious: Yes (Other)
  Sender: FDA-Public Use
  Company Number: US-MYLANLABS-2009S1012825

PATIENT
  Age: 80 Year
  Sex: Female
  Weight: 56.7 kg

DRUGS (12)
  1. CLOZAPINE [Suspect]
     Indication: SCHIZOPHRENIA
     Route: 048
     Dates: start: 20090613, end: 20090713
  2. CLOZAPINE [Suspect]
     Route: 048
     Dates: start: 20090613, end: 20090713
  3. CLOZAPINE [Suspect]
     Route: 048
     Dates: start: 20090718, end: 20090720
  4. ISOSORBIDE DINITRATE [Concomitant]
     Route: 048
  5. MIDRIN [Concomitant]
  6. POTASSIUM CHLORIDE [Concomitant]
     Route: 048
  7. SIMVASTATIN [Concomitant]
     Route: 048
     Dates: start: 20090401
  8. CEPHALEXIN [Concomitant]
     Route: 048
  9. ACIDOPHILUS/PECTIN [Concomitant]
     Route: 048
  10. IBUPROFEN [Concomitant]
     Route: 048
  11. DOCUSATE SODIUM [Concomitant]
     Route: 048
  12. XALATAN [Concomitant]
     Dosage: OU
     Route: 047

REACTIONS (1)
  - GRANULOCYTOPENIA [None]
